FAERS Safety Report 14227961 (Version 1)
Quarter: 2017Q4

REPORT INFORMATION
  Report Type: Spontaneous
  Country: JP (occurrence: JP)
  Receive Date: 20171127
  Receipt Date: 20171127
  Transmission Date: 20180321
  Serious: Yes (Other)
  Sender: FDA-Public Use
  Company Number: JP-009507513-1711JPN005606

PATIENT
  Age: 70 Year
  Sex: Female

DRUGS (4)
  1. REFLEX [Suspect]
     Active Substance: MIRTAZAPINE
     Indication: IRRITABILITY
     Dosage: 15 MG
     Route: 048
  2. BROTIZOLAM [Concomitant]
     Active Substance: BROTIZOLAM
     Dosage: UNK
     Route: 048
  3. REFLEX [Suspect]
     Active Substance: MIRTAZAPINE
     Indication: FEELING ABNORMAL
     Dosage: 7.5 MG
     Route: 048
  4. LORAZEPAM. [Concomitant]
     Active Substance: LORAZEPAM
     Dosage: UNK
     Route: 048

REACTIONS (8)
  - Loss of consciousness [Unknown]
  - Drug ineffective [Unknown]
  - Malaise [Unknown]
  - Dizziness [Unknown]
  - Paraesthesia [Unknown]
  - Oropharyngeal pain [Unknown]
  - Dizziness [Not Recovered/Not Resolved]
  - Feeling abnormal [Not Recovered/Not Resolved]
